FAERS Safety Report 14384935 (Version 1)
Quarter: 2018Q1

REPORT INFORMATION
  Report Type: Spontaneous
  Country: DE (occurrence: DE)
  Receive Date: 20180115
  Receipt Date: 20180115
  Transmission Date: 20180509
  Serious: Yes (Hospitalization)
  Sender: FDA-Public Use
  Company Number: DE-009507513-1801DEU002518

PATIENT
  Sex: Female

DRUGS (1)
  1. IMPLANON [Suspect]
     Active Substance: ETONOGESTREL
     Indication: CONTRACEPTION
     Dosage: 1 ROD
     Route: 059

REACTIONS (4)
  - Surgery [Unknown]
  - Intervertebral disc protrusion [Unknown]
  - Drug interaction [Unknown]
  - Analgesic therapy [Unknown]

NARRATIVE: CASE EVENT DATE: 2017
